FAERS Safety Report 10784170 (Version 2)
Quarter: 2016Q4

REPORT INFORMATION
  Report Type: Report from Study
  Country: DE (occurrence: DE)
  Receive Date: 20150211
  Receipt Date: 20161121
  Transmission Date: 20170206
  Serious: Yes (Death, Hospitalization)
  Sender: FDA-Public Use
  Company Number: DE-ROCHE-1525498

PATIENT
  Age: 65 Year
  Sex: Female
  Weight: 34 kg

DRUGS (5)
  1. DEXAMETHASON [Concomitant]
     Active Substance: DEXAMETHASONE
     Indication: VOMITING
     Dosage: DAY -1,1,2
     Route: 048
     Dates: start: 20141022
  2. BEVACIZUMAB [Suspect]
     Active Substance: BEVACIZUMAB
     Indication: LUNG NEOPLASM MALIGNANT
     Dosage: Q1-8-15
     Route: 042
     Dates: start: 20141023, end: 20150812
  3. CARBOPLATIN. [Suspect]
     Active Substance: CARBOPLATIN
     Indication: LUNG NEOPLASM MALIGNANT
     Dosage: AUC 2, DAY 1, 8, 15
     Route: 042
     Dates: start: 20141023
  4. PACLITAXEL. [Suspect]
     Active Substance: PACLITAXEL
     Indication: LUNG NEOPLASM MALIGNANT
     Dosage: DAY 1, 8, 15
     Route: 042
     Dates: start: 20141023
  5. LACOSAMIDE. [Concomitant]
     Active Substance: LACOSAMIDE
     Indication: EPILEPSY
     Route: 048
     Dates: start: 20120701

REACTIONS (4)
  - Partial seizures [Recovered/Resolved]
  - Pleuritic pain [Recovered/Resolved]
  - General physical health deterioration [Fatal]
  - Faeces discoloured [Recovered/Resolved]

NARRATIVE: CASE EVENT DATE: 20141117
